FAERS Safety Report 6600936-7 (Version None)
Quarter: 2010Q1

REPORT INFORMATION
  Report Type: 
  Country: None (occurrence: None)
  Receive Date: 20100225
  Receipt Date: 20100218
  Transmission Date: 20100710
  Serious: Yes (Hospitalization)
  Sender: FDA-Public Use
  Company Number: US-ASTRAZENECA-2010SE07298

PATIENT
  Age: 43 Year
  Sex: Female

DRUGS (2)
  1. SEROQUEL XR [Suspect]
     Route: 048
  2. SEROQUEL XR [Suspect]
     Dosage: TOOK 150 OF THE 200 MG PILLS
     Route: 048

REACTIONS (5)
  - BIPOLAR DISORDER [None]
  - BORDERLINE PERSONALITY DISORDER [None]
  - DRUG DISPENSING ERROR [None]
  - OVERDOSE [None]
  - SUICIDE ATTEMPT [None]
